FAERS Safety Report 9843432 (Version 1)
Quarter: 2013Q4

REPORT INFORMATION
  Report Type: Spontaneous
  Country: US (occurrence: None)
  Receive Date: 20131219
  Receipt Date: 20131219
  Transmission Date: 20140711
  Serious: Yes (Hospitalization)
  Sender: FDA-Public Use
  Company Number: 163-20785-13080384

PATIENT
  Age: 80 Year
  Sex: Female

DRUGS (1)
  1. THALOMID (THALIDOMIDE) (50 MILLIGRAM, CAPSULES) [Suspect]
     Indication: PLASMA CELL MYELOMA
     Dosage: 50MG-100MG-150MG-200MG, 1 CAP X7D, THEN 2X7D, THEN 3X7D, 4X 7D
     Route: 048
     Dates: start: 20130502, end: 2013

REACTIONS (2)
  - Back pain [None]
  - Drug ineffective [None]
